FAERS Safety Report 21182736 (Version 1)
Quarter: 2022Q3

REPORT INFORMATION
  Report Type: Spontaneous
  Country: ES (occurrence: ES)
  Receive Date: 20220808
  Receipt Date: 20220808
  Transmission Date: 20221027
  Serious: Yes (Other)
  Sender: FDA-Public Use
  Company Number: None

PATIENT
  Age: 57 Year
  Sex: Male

DRUGS (1)
  1. ETANERCEPT [Suspect]
     Active Substance: ETANERCEPT
     Indication: Psoriatic arthropathy
     Dosage: 1 SYRINGE EVERY 7 DAYS, (4 PREFILLED SYRINGES)
     Route: 058
     Dates: start: 20220530, end: 20220601

REACTIONS (1)
  - Quadriparesis [Recovered/Resolved]

NARRATIVE: CASE EVENT DATE: 20220606
